FAERS Safety Report 8019665 (Version 2)
Quarter: 2014Q1

REPORT INFORMATION
  Report Type: Report from Study
  Country: US (occurrence: US)
  Receive Date: 20110704
  Receipt Date: 20140130
  Transmission Date: 20141002
  Serious: Yes (Hospitalization)
  Sender: FDA-Public Use
  Company Number: PHHO2011US05141

PATIENT
  Age: 78 Year
  Sex: Male
  Weight: 65.9 kg

DRUGS (3)
  1. EXELON [Suspect]
     Indication: DEMENTIA ALZHEIMER^S TYPE
     Dosage: UNK
     Dates: start: 20101023, end: 20101119
  2. EXELON [Suspect]
     Dosage: 1 DF, (5 CM^2)
     Dates: start: 20101120, end: 20110316
  3. EXELON [Suspect]
     Dosage: UNK
     Dates: start: 20110313

REACTIONS (3)
  - Syncope [Recovered/Resolved]
  - Hypotension [Recovered/Resolved]
  - Dehydration [Recovered/Resolved]
